FAERS Safety Report 12348888 (Version 2)
Quarter: 2016Q2

REPORT INFORMATION
  Report Type: Report from Study
  Country: IL (occurrence: IL)
  Receive Date: 20160509
  Receipt Date: 20160527
  Transmission Date: 20160815
  Serious: Yes (Death)
  Sender: FDA-Public Use
  Company Number: IL-ABBVIE-16P-082-1621684-00

PATIENT
  Age: 83 Year
  Sex: Male

DRUGS (1)
  1. DUODOPA [Suspect]
     Active Substance: CARBIDOPA\LEVODOPA
     Indication: PARKINSON^S DISEASE
     Route: 050

REACTIONS (6)
  - Lung disorder [Unknown]
  - Device dislocation [Unknown]
  - Pyrexia [Unknown]
  - Rhonchi [Unknown]
  - Pneumonia [Fatal]
  - Fall [Unknown]

NARRATIVE: CASE EVENT DATE: 20160502
